FAERS Safety Report 5180059-7 (Version None)
Quarter: 2006Q4

REPORT INFORMATION
  Report Type: 
  Country: None (occurrence: None)
  Receive Date: 20061211
  Receipt Date: 20061206
  Transmission Date: 20070319
  Serious: Yes (Hospitalization)
  Sender: FDA-Public Use
  Company Number: 225608

PATIENT
  Age: 72 Year
  Sex: Male

DRUGS (4)
  1. GRTPA(ALTEPLASE) PWDR + SOLVENT,INFUSION SOLN [Suspect]
     Indication: CEREBRAL INFARCTION
     Dosage: 24 MIU, SINGLE; INTRAVENOUS
     Route: 042
     Dates: start: 20060502, end: 20060502
  2. MODACIN (CEFTAZIDINE) [Concomitant]
  3. RADICUT (EDARAVONE) [Concomitant]
  4. DILTIAZEM HCL [Concomitant]

REACTIONS (4)
  - CEREBRAL INFARCTION [None]
  - CONDITION AGGRAVATED [None]
  - DEPRESSED LEVEL OF CONSCIOUSNESS [None]
  - INFECTION [None]
